FAERS Safety Report 5987927 (Version 28)
Quarter: 2013Q3

REPORT INFORMATION
  Report Type: Spontaneous
  Country: US (occurrence: US)
  Receive Date: 20060221
  Receipt Date: 20130719
  Transmission Date: 20140515
  Serious: Yes (Death, Hospitalization, Other)
  Sender: FDA-Public Use
  Company Number: PHEH2006US02051

PATIENT
  Age: 56 Year
  Sex: Female
  Weight: 76.19 kg

DRUGS (19)
  1. ZOMETA [Suspect]
     Indication: METASTASES TO BONE
     Dosage: 4 MG, QMO
     Dates: start: 20031229, end: 20051022
  2. ZOMETA [Suspect]
     Indication: BREAST CANCER
  3. FEMARA [Concomitant]
     Indication: BREAST CANCER
  4. ZOLOFT [Concomitant]
     Indication: ANXIETY
     Dosage: 50 MG, BID
  5. ZOLOFT [Concomitant]
     Indication: DEPRESSION
  6. AMBIEN [Concomitant]
  7. PROTONIX [Concomitant]
     Dosage: 40 MG, QD
  8. FIORICET [Concomitant]
  9. CODEINE [Concomitant]
  10. ZANTAC [Concomitant]
  11. XANAX [Concomitant]
  12. RADIATION THERAPY [Concomitant]
     Indication: METASTASES TO SPINE
  13. CHEMOTHERAPEUTICS NOS [Concomitant]
  14. CLARITIN-D [Concomitant]
  15. PREMPRO [Concomitant]
  16. ROBAXIN [Concomitant]
     Dosage: 750 MG,
  17. TAXOL [Concomitant]
  18. GEMZAR [Concomitant]
  19. AROMASIN [Concomitant]

REACTIONS (99)
  - Breast cancer metastatic [Fatal]
  - Osteonecrosis of jaw [Recovering/Resolving]
  - Facial pain [Unknown]
  - Tooth loss [Unknown]
  - Local swelling [Unknown]
  - Trismus [Unknown]
  - Abscess jaw [Unknown]
  - Bone disorder [Unknown]
  - Osteosclerosis [Unknown]
  - Oral infection [Recovered/Resolved]
  - Loose tooth [Unknown]
  - Osteomyelitis [Unknown]
  - Cellulitis [Unknown]
  - Mucosal ulceration [Unknown]
  - Primary sequestrum [Unknown]
  - Oral pain [Recovered/Resolved]
  - Swelling face [Recovered/Resolved]
  - Mastication disorder [Unknown]
  - Stomatitis [Unknown]
  - Fall [Unknown]
  - Gastroenteritis clostridial [Unknown]
  - Abdominal pain upper [Unknown]
  - Asthenia [Not Recovered/Not Resolved]
  - Malaise [Unknown]
  - Uterine prolapse [Unknown]
  - Rectocele [Unknown]
  - Enterocele [Unknown]
  - Cystocele [Unknown]
  - Diarrhoea [Recovering/Resolving]
  - Abdominal discomfort [Recovering/Resolving]
  - Dizziness [Not Recovered/Not Resolved]
  - Febrile neutropenia [Unknown]
  - Syncope [Unknown]
  - Head injury [Unknown]
  - Metastases to liver [Unknown]
  - Metastases to bone [Unknown]
  - Neoplasm [Unknown]
  - Systemic lupus erythematosus [Unknown]
  - Weight increased [Unknown]
  - Humerus fracture [Unknown]
  - Deep vein thrombosis [Unknown]
  - Hepatomegaly [Unknown]
  - Compression fracture [Unknown]
  - Lymphoedema [Unknown]
  - Oesophageal ulcer [Unknown]
  - Anaemia [Unknown]
  - Ecchymosis [Unknown]
  - Tenderness [Unknown]
  - Sleep apnoea syndrome [Unknown]
  - Uterine leiomyoma [Unknown]
  - Ovarian cyst [Unknown]
  - Polyp [Unknown]
  - Seborrhoeic keratosis [Unknown]
  - Memory impairment [Unknown]
  - Chest pain [Unknown]
  - Carpal tunnel syndrome [Unknown]
  - Temporomandibular joint syndrome [Unknown]
  - Arthritis [Unknown]
  - Tachycardia [Unknown]
  - Blood cholesterol increased [Unknown]
  - Hypertension [Unknown]
  - Dyspnoea [Unknown]
  - Back pain [Unknown]
  - Hiatus hernia [Unknown]
  - Dysphagia [Unknown]
  - Haemorrhoids [Unknown]
  - Foot fracture [Recovering/Resolving]
  - Bowel movement irregularity [Unknown]
  - Neuroma [Unknown]
  - Urinary tract infection [Unknown]
  - Sepsis [Unknown]
  - Gait disturbance [Unknown]
  - Foot deformity [Unknown]
  - Insomnia [Unknown]
  - Spinal osteoarthritis [Unknown]
  - Malignant neoplasm progression [Unknown]
  - Aortic calcification [Unknown]
  - Osteoarthritis [Unknown]
  - Intervertebral disc protrusion [Unknown]
  - Exostosis [Unknown]
  - Bone lesion [Unknown]
  - Myocardial infarction [Unknown]
  - Pathological fracture [Unknown]
  - Pain in jaw [Unknown]
  - Muscle disorder [Unknown]
  - Gingival pain [Unknown]
  - Soft tissue inflammation [Unknown]
  - Phlebitis deep [Unknown]
  - Pain in extremity [Unknown]
  - Hypoaesthesia [Unknown]
  - Paraesthesia [Unknown]
  - Ligament sprain [Unknown]
  - Tendonitis [Unknown]
  - Epicondylitis [Unknown]
  - Headache [Unknown]
  - Constipation [Unknown]
  - Joint swelling [Unknown]
  - Scar [Unknown]
  - Neuropathy peripheral [Unknown]
